FAERS Safety Report 6164455-7 (Version None)
Quarter: 2009Q2

REPORT INFORMATION
  Report Type: 
  Country: None (occurrence: None)
  Receive Date: 20090421
  Receipt Date: 20090406
  Transmission Date: 20091009
  Serious: Yes (Other)
  Sender: FDA-Public Use
  Company Number: DSU-2009-00848

PATIENT
  Sex: Female

DRUGS (1)
  1. EVOXAC [Suspect]
     Indication: SJOGREN'S SYNDROME
     Dosage: 60 MG (30 MG, BID), PER ORAL
     Route: 048

REACTIONS (2)
  - ALTERED VISUAL DEPTH PERCEPTION [None]
  - HEAD INJURY [None]
